FAERS Safety Report 8890676 (Version 2)
Quarter: 2013Q1

REPORT INFORMATION
  Report Type: Spontaneous
  Country: US (occurrence: US)
  Receive Date: 20121107
  Receipt Date: 20130109
  Transmission Date: 20140127
  Serious: No
  Sender: FDA-Public Use
  Company Number: US-PFIZER INC-2012276654

PATIENT
  Sex: Female

DRUGS (1)
  1. DIFLUCAN [Suspect]
     Dosage: UNK, WEEKLY
     Dates: start: 2012

REACTIONS (2)
  - Leukopenia [Unknown]
  - Platelet count decreased [Unknown]
